FAERS Safety Report 8571057-1 (Version None)
Quarter: 2012Q3

REPORT INFORMATION
  Report Type: 
  Country: None (occurrence: None)
  Receive Date: 20120730
  Receipt Date: 20120730
  Transmission Date: 20120928
  Serious: Yes (Hospitalization)
  Sender: FDA-Public Use
  Company Number: None

PATIENT
  Age: 44 Year
  Sex: Female
  Weight: 67.3 kg

DRUGS (2)
  1. OXALIPLATIN [Suspect]
     Indication: RECTAL CANCER METASTATIC
     Dosage: 150 MG IV
     Route: 042
     Dates: start: 20120716
  2. OXALIPLATIN [Suspect]
     Indication: RECTAL CANCER METASTATIC
     Dosage: 150 MG IV
     Route: 042
     Dates: start: 20120611

REACTIONS (6)
  - NO THERAPEUTIC RESPONSE [None]
  - NAUSEA [None]
  - REFUSAL OF TREATMENT BY PATIENT [None]
  - RETCHING [None]
  - VOMITING [None]
  - DEHYDRATION [None]
